FAERS Safety Report 11860424 (Version 2)
Quarter: 2016Q1

REPORT INFORMATION
  Report Type: Spontaneous
  Country: DE (occurrence: DE)
  Receive Date: 20151222
  Receipt Date: 20160202
  Transmission Date: 20160526
  Serious: Yes (Hospitalization)
  Sender: FDA-Public Use
  Company Number: DE-BAYER-2015-494155

PATIENT
  Age: 67 Year
  Sex: Female
  Weight: 93 kg

DRUGS (3)
  1. GADOVIST [Suspect]
     Active Substance: GADOBUTROL
     Indication: NUCLEAR MAGNETIC RESONANCE IMAGING
     Dosage: 9 ML, QD
     Route: 042
     Dates: start: 20151208, end: 20151208
  2. GADOVIST [Suspect]
     Active Substance: GADOBUTROL
     Indication: POSITRON EMISSION TOMOGRAM
  3. GADOVIST [Suspect]
     Active Substance: GADOBUTROL
     Indication: RECTAL CANCER

REACTIONS (10)
  - Bronchospasm [None]
  - Productive cough [None]
  - Urticaria [None]
  - Cyanosis [None]
  - Nausea [None]
  - Dysphonia [Unknown]
  - Malaise [None]
  - Lip oedema [None]
  - Sensation of foreign body [Unknown]
  - Dyspnoea [None]

NARRATIVE: CASE EVENT DATE: 20151208
